FAERS Safety Report 23749628 (Version 2)
Quarter: 2024Q2

REPORT INFORMATION
  Report Type: Spontaneous
  Country: US (occurrence: US)
  Receive Date: 20240416
  Receipt Date: 20240520
  Transmission Date: 20240716
  Serious: No
  Sender: FDA-Public Use
  Company Number: US-BIOGEN-2024BI01244846

PATIENT
  Sex: Female

DRUGS (3)
  1. SKYCLARYS [Suspect]
     Active Substance: OMAVELOXOLONE
     Indication: Friedreich^s ataxia
     Route: 050
     Dates: start: 20230707
  2. SKYCLARYS [Suspect]
     Active Substance: OMAVELOXOLONE
     Dosage: 50 MILLIGRAM, QD (1 CAPSULE)
     Route: 050
     Dates: start: 2023
  3. SKYCLARYS [Suspect]
     Active Substance: OMAVELOXOLONE
     Dosage: 50 MILLIGRAM, QD (1 CAPSULE)
     Route: 050
     Dates: start: 20230708

REACTIONS (1)
  - Hepatic enzyme increased [Unknown]

NARRATIVE: CASE EVENT DATE: 20230101
